FAERS Safety Report 21842947 (Version 2)
Quarter: 2023Q1

REPORT INFORMATION
  Report Type: Spontaneous
  Country: CA (occurrence: CA)
  Receive Date: 20230110
  Receipt Date: 20230210
  Transmission Date: 20230417
  Serious: Yes (Other)
  Sender: FDA-Public Use
  Company Number: CA-ANIPHARMA-2020-CA-001490

PATIENT
  Age: 64 Year
  Sex: Male

DRUGS (10)
  1. CANDESARTAN CILEXETIL [Suspect]
     Active Substance: CANDESARTAN CILEXETIL
     Indication: Hypertension
     Dosage: 2 DF QD
     Route: 048
     Dates: start: 2008
  2. VENTOLIN [Concomitant]
     Active Substance: ALBUTEROL SULFATE
     Dosage: 2 DF BID
     Route: 055
     Dates: start: 201612
  3. ATORVASTATIN CALCIUM [Suspect]
     Active Substance: ATORVASTATIN CALCIUM
     Dosage: 1 DF BID
     Route: 048
     Dates: start: 2008
  4. SERTRALINE HYDROCHLORIDE [Concomitant]
     Active Substance: SERTRALINE HYDROCHLORIDE
     Dosage: 1 DF QD
     Route: 048
     Dates: start: 2015
  5. COSOPT [Concomitant]
     Active Substance: DORZOLAMIDE HYDROCHLORIDE\TIMOLOL MALEATE
     Dosage: 2 DF BID
     Dates: start: 2013
  6. METFORMIN [Suspect]
     Active Substance: METFORMIN HYDROCHLORIDE
     Dosage: 1 DF BID
     Route: 048
     Dates: start: 2008
  7. OMALIZUMAB [Suspect]
     Active Substance: OMALIZUMAB
     Dosage: 375 MG Q2WK
     Route: 058
     Dates: start: 20170823
  8. PREDNISONE [Concomitant]
     Active Substance: PREDNISONE
     Dosage: 1 DF QD
     Route: 048
     Dates: start: 20170623
  9. SPIRIVA [Concomitant]
     Active Substance: TIOTROPIUM BROMIDE MONOHYDRATE
     Dosage: 1 DF QD
     Route: 055
     Dates: start: 201701
  10. SYMBICORT [Concomitant]
     Active Substance: BUDESONIDE\FORMOTEROL FUMARATE DIHYDRATE
     Dosage: 4 DF TWO TIMES A DAY
     Route: 055
     Dates: start: 2016

REACTIONS (15)
  - Asthma [Unknown]
  - Emphysema [Unknown]
  - Dyspnoea [Unknown]
  - Hypokinesia [Not Recovered/Not Resolved]
  - General physical health deterioration [Unknown]
  - Fall [Unknown]
  - Hepatic cirrhosis [Unknown]
  - Asthenia [Unknown]
  - Dyspnoea exertional [Unknown]
  - Gastrointestinal carcinoma [Unknown]
  - Productive cough [Unknown]
  - Spirometry abnormal [Not Recovered/Not Resolved]
  - Weight increased [Unknown]
  - Anxiety [Unknown]
  - Tremor [Unknown]

NARRATIVE: CASE EVENT DATE: 20190219
